FAERS Safety Report 9272925 (Version 1)
Quarter: 2013Q2

REPORT INFORMATION
  Report Type: Spontaneous
  Country: US (occurrence: US)
  Receive Date: 20130506
  Receipt Date: 20130506
  Transmission Date: 20140414
  Serious: Yes (Life-Threatening, Hospitalization)
  Sender: FDA-Public Use
  Company Number: PHEH2013US009910

PATIENT
  Age: 72 Year
  Sex: Female
  Weight: 68.94 kg

DRUGS (2)
  1. AFINITOR [Suspect]
     Indication: BREAST CANCER
     Dosage: 10 MG, UNK
     Dates: start: 20120701
  2. EXEMESTANE [Concomitant]
     Dates: start: 201207

REACTIONS (4)
  - Pancreatitis [Unknown]
  - Enteritis [Unknown]
  - Abdominal pain [Unknown]
  - Renal failure [Unknown]
